FAERS Safety Report 9772386 (Version 1)
Quarter: 2013Q4

REPORT INFORMATION
  Report Type: Spontaneous
  Country: US (occurrence: US)
  Receive Date: 20131219
  Receipt Date: 20131219
  Transmission Date: 20140711
  Serious: Yes (Death, Hospitalization)
  Sender: FDA-Public Use
  Company Number: US-B.I. PHARMACEUTICALS,INC./RIDGEFIELD-2013-BI-42621BP

PATIENT
  Sex: Female

DRUGS (1)
  1. PRADAXA [Suspect]
     Dosage: 300 MG
     Dates: start: 20110916, end: 20111117

REACTIONS (7)
  - Gastrointestinal haemorrhage [Fatal]
  - Anaemia [Fatal]
  - Renal failure acute [Unknown]
  - Acute myocardial infarction [Unknown]
  - Pleural effusion [Unknown]
  - Anaemia [Unknown]
  - Renal failure chronic [Unknown]
